FAERS Safety Report 16276990 (Version 1)
Quarter: 2019Q2

REPORT INFORMATION
  Report Type: Spontaneous
  Country: US (occurrence: US)
  Receive Date: 20190504
  Receipt Date: 20190504
  Transmission Date: 20190711
  Serious: Yes (Disabling, Other)
  Sender: FDA-Public Use
  Company Number: None

PATIENT
  Age: 28 Year
  Sex: Female

DRUGS (3)
  1. RE-IEX SMILE [Suspect]
     Active Substance: DEVICE
  2. EYE LUBRICANTS [Concomitant]
  3. DOXYCYCLINE. [Suspect]
     Active Substance: DOXYCYCLINE

REACTIONS (2)
  - Abdominal discomfort [None]
  - Diffuse lamellar keratitis [None]

NARRATIVE: CASE EVENT DATE: 20180703
